FAERS Safety Report 9743227 (Version 2)
Quarter: 2015Q3

REPORT INFORMATION
  Report Type: Spontaneous
  Country: US (occurrence: US)
  Receive Date: 20131210
  Receipt Date: 20150804
  Transmission Date: 20151125
  Serious: No
  Sender: FDA-Public Use
  Company Number: US-GILEAD-2009-0025065

PATIENT
  Age: 69 Year
  Sex: Female
  Weight: 63.96 kg

DRUGS (14)
  1. PLO GEL [Concomitant]
  2. FOLIC ACID. [Concomitant]
     Active Substance: FOLIC ACID
  3. MULTIVITAMIN [Concomitant]
     Active Substance: VITAMINS
  4. IMODIUM A-D [Concomitant]
     Active Substance: LOPERAMIDE HYDROCHLORIDE
  5. MIKRO-K [Concomitant]
  6. VITAMIN D [Concomitant]
     Active Substance: CHOLECALCIFEROL
  7. IRON [Concomitant]
     Active Substance: IRON
  8. LETAIRIS [Suspect]
     Active Substance: AMBRISENTAN
     Route: 048
     Dates: start: 20090822
  9. LEVOTHYROXINE. [Concomitant]
     Active Substance: LEVOTHYROXINE
  10. FUROSEMIDE. [Concomitant]
     Active Substance: FUROSEMIDE
  11. REMODULIN [Concomitant]
     Active Substance: TREPROSTINIL
  12. EXOXAC [Concomitant]
  13. LETAIRIS [Suspect]
     Active Substance: AMBRISENTAN
     Indication: PULMONARY ARTERIAL HYPERTENSION
     Route: 048
  14. ALDACTONE [Concomitant]
     Active Substance: SPIRONOLACTONE

REACTIONS (1)
  - Anaemia [Unknown]
